FAERS Safety Report 24125746 (Version 1)
Quarter: 2024Q3

REPORT INFORMATION
  Report Type: Spontaneous
  Country: CN (occurrence: CN)
  Receive Date: 20240723
  Receipt Date: 20240723
  Transmission Date: 20241016
  Serious: Yes (Hospitalization)
  Sender: ABBVIE
  Company Number: CN-ABBVIE-5845940

PATIENT
  Age: 61 Year
  Sex: Male
  Weight: 73 kg

DRUGS (3)
  1. VENETOCLAX [Suspect]
     Active Substance: VENETOCLAX
     Indication: Neoplasm prophylaxis
     Dosage: 20 MILLIGRAM
     Route: 048
     Dates: start: 20240426, end: 20240430
  2. DECITABINE [Suspect]
     Active Substance: DECITABINE
     Indication: Neoplasm prophylaxis
     Dosage: 10 MILLIGRAM
     Route: 041
     Dates: start: 20240426, end: 20240502
  3. CYTARABINE [Suspect]
     Active Substance: CYTARABINE
     Indication: Neoplasm prophylaxis
     Dosage: 0.02 GRAM?LOW-DOSE
     Route: 058
     Dates: start: 20240426, end: 20240509

REACTIONS (3)
  - Myelosuppression [Recovering/Resolving]
  - Granulocyte count decreased [Recovering/Resolving]
  - Full blood count decreased [Recovering/Resolving]

NARRATIVE: CASE EVENT DATE: 20240501
